FAERS Safety Report 10567814 (Version 1)
Quarter: 2014Q4

REPORT INFORMATION
  Report Type: Spontaneous
  Country: US (occurrence: None)
  Receive Date: 20141104
  Receipt Date: 20141104
  Transmission Date: 20150529
  Serious: Yes (Hospitalization)
  Sender: FDA-Public Use
  Company Number: IPC201410-000569

PATIENT
  Age: 60 Year
  Sex: Female

DRUGS (7)
  1. METOPROLOL TARTRATE. [Suspect]
     Active Substance: METOPROLOL TARTRATE
     Indication: HYPERTENSION
  2. CLONIDINE. [Suspect]
     Active Substance: CLONIDINE
     Indication: HYPERTENSION
  3. DILTIAZEM [Suspect]
     Active Substance: DILTIAZEM
  4. BUPRENORPHINE/NALOXONE [Suspect]
     Active Substance: BUPRENORPHINE\NALOXONE
     Indication: ANALGESIC THERAPY
     Dosage: SUBLINGUAL TWO 8/2 MG STRIPS PER DAY
     Route: 060
  5. HYDROCHLOROTHIAZIDE. [Suspect]
     Active Substance: HYDROCHLOROTHIAZIDE
  6. LISINOPRIL. [Suspect]
     Active Substance: LISINOPRIL
     Indication: BLOOD PRESSURE
  7. AMITRIPTYLINE [Suspect]
     Active Substance: AMITRIPTYLINE
     Indication: DEPRESSION
     Dosage: SUBLINGUAL TWO 8/2 MG STRIPS PER DAY

REACTIONS (12)
  - Acute kidney injury [None]
  - Refusal of treatment by patient [None]
  - Headache [None]
  - Mental status changes [None]
  - Cerebral atrophy [None]
  - Loss of consciousness [None]
  - Drug abuse [None]
  - Encephalomalacia [None]
  - Cerebellar atrophy [None]
  - Lacunar infarction [None]
  - Hypertensive crisis [None]
  - Hallucination [None]
